FAERS Safety Report 8124662-0 (Version None)
Quarter: 2012Q1

REPORT INFORMATION
  Report Type: 
  Country: None (occurrence: None)
  Receive Date: 20120209
  Receipt Date: 20120209
  Transmission Date: 20120608
  Serious: Yes (Other)
  Sender: FDA-Public Use
  Company Number: None

PATIENT
  Age: 48 Year
  Sex: Female
  Weight: 101.15 kg

DRUGS (2)
  1. TYGACIL [Suspect]
     Indication: PASTEURELLA INFECTION
     Route: 041
     Dates: start: 20120123, end: 20120207
  2. TYGACIL [Suspect]
     Indication: ANIMAL BITE
     Route: 041
     Dates: start: 20120123, end: 20120207

REACTIONS (4)
  - WEIGHT INCREASED [None]
  - HUNGER [None]
  - SLEEP DISORDER [None]
  - ACTIVITIES OF DAILY LIVING IMPAIRED [None]
